FAERS Safety Report 15011503 (Version 1)
Quarter: 2018Q2

REPORT INFORMATION
  Report Type: Spontaneous
  Country: US (occurrence: US)
  Receive Date: 20180614
  Receipt Date: 20180614
  Transmission Date: 20180711
  Serious: No
  Sender: FDA-Public Use
  Company Number: US-GLAXOSMITHKLINE-US2018100133

PATIENT
  Age: 51 Year
  Sex: Male

DRUGS (1)
  1. NICODERM CQ [Suspect]
     Active Substance: NICOTINE
     Indication: SMOKING CESSATION THERAPY
     Dosage: 14 MG, UNK
     Dates: start: 20180522

REACTIONS (6)
  - Erythema [Unknown]
  - Skin reaction [Unknown]
  - Pruritus [Unknown]
  - Urticaria [Unknown]
  - Skin irritation [Unknown]
  - Burning sensation [Unknown]

NARRATIVE: CASE EVENT DATE: 20180603
